FAERS Safety Report 5576871-2 (Version None)
Quarter: 2007Q4

REPORT INFORMATION
  Report Type: 
  Country: None (occurrence: None)
  Receive Date: 20071228
  Receipt Date: 20071218
  Transmission Date: 20080405
  Serious: Yes (Hospitalization)
  Sender: FDA-Public Use
  Company Number: DE-GENENTECH-253425

PATIENT
  Sex: Female
  Weight: 73 kg

DRUGS (8)
  1. RITUXIMAB [Suspect]
     Indication: RHEUMATOID ARTHRITIS
     Dosage: 1 G, UNKNOWN
     Route: 065
     Dates: start: 20070305
  2. STEROIDS - UNKNOWN TYPE [Concomitant]
     Indication: PREMEDICATION
     Dosage: 100 MG, UNK
  3. ACETAMINOPHEN [Concomitant]
     Indication: PREMEDICATION
     Dosage: 100 MG, UNK
  4. CLEMASTINE FUMARATE [Concomitant]
     Indication: PREMEDICATION
     Dosage: 2 MG, UNK
  5. ENDOXAN [Concomitant]
     Indication: DRUG USE FOR UNKNOWN INDICATION
     Dates: start: 20070315
  6. NEXIUM [Concomitant]
     Indication: DRUG USE FOR UNKNOWN INDICATION
     Dates: start: 20070215
  7. IBUPROFEN [Concomitant]
     Indication: DRUG USE FOR UNKNOWN INDICATION
     Dates: start: 20070215
  8. PREDNISOLONE [Concomitant]
     Indication: DRUG USE FOR UNKNOWN INDICATION
     Dates: start: 20010515

REACTIONS (1)
  - PANNICULITIS [None]
